FAERS Safety Report 6411947-9 (Version None)
Quarter: 2009Q4

REPORT INFORMATION
  Report Type: 
  Country: None (occurrence: None)
  Receive Date: 20091023
  Receipt Date: 20091021
  Transmission Date: 20100525
  Serious: Yes (Hospitalization)
  Sender: FDA-Public Use
  Company Number: JP-JNJFOC-20091006479

PATIENT
  Age: 48 Year
  Sex: Male

DRUGS (5)
  1. PEPCID [Suspect]
  2. PEPCID [Suspect]
     Indication: HEPATIC CIRRHOSIS
  3. FUROSEMIDE [Concomitant]
     Indication: HEPATIC CIRRHOSIS
  4. SPIRONOLACTONE [Concomitant]
     Indication: HEPATIC CIRRHOSIS
  5. AMINO ACID INJ [Concomitant]
     Indication: HEPATIC CIRRHOSIS

REACTIONS (3)
  - LONG QT SYNDROME [None]
  - OEDEMA PERIPHERAL [None]
  - OLIGURIA [None]
